FAERS Safety Report 17261823 (Version 1)
Quarter: 2020Q1

REPORT INFORMATION
  Report Type: Spontaneous
  Country: US (occurrence: US)
  Receive Date: 20200113
  Receipt Date: 20200113
  Transmission Date: 20200409
  Serious: No
  Sender: FDA-Public Use
  Company Number: US-JNJFOC-20200105392

PATIENT
  Age: 50 Year
  Sex: Female
  Weight: 72.64 kg

DRUGS (3)
  1. ELMIRON [Suspect]
     Active Substance: PENTOSAN POLYSULFATE SODIUM
     Indication: CYSTITIS INTERSTITIAL
     Dosage: TWO OR THREE CAPSULES WEEKLY
     Route: 048
     Dates: start: 200904
  2. ELMIRON [Suspect]
     Active Substance: PENTOSAN POLYSULFATE SODIUM
     Route: 048
     Dates: start: 200904
  3. ELMIRON [Suspect]
     Active Substance: PENTOSAN POLYSULFATE SODIUM
     Dosage: TWO OR THREE CAPSULES EVERY 2 WEEK
     Route: 048

REACTIONS (4)
  - Treatment noncompliance [Unknown]
  - Cystitis interstitial [Not Recovered/Not Resolved]
  - Stress [Unknown]
  - Herpes zoster [Unknown]

NARRATIVE: CASE EVENT DATE: 20191229
